FAERS Safety Report 17573560 (Version 1)
Quarter: 2020Q1

REPORT INFORMATION
  Report Type: Spontaneous
  Country: US (occurrence: US)
  Receive Date: 20200323
  Receipt Date: 20200323
  Transmission Date: 20200409
  Serious: No
  Sender: FDA-Public Use
  Company Number: US-OCULAR THERAPEUTIX-2020OCX00003

PATIENT

DRUGS (1)
  1. DEXTENZA [Suspect]
     Active Substance: DEXAMETHASONE

REACTIONS (3)
  - Throat irritation [Unknown]
  - Seasonal allergy [Unknown]
  - Oral pruritus [Unknown]
